FAERS Safety Report 10141488 (Version 1)
Quarter: 2014Q2

REPORT INFORMATION
  Report Type: Spontaneous
  Country: BR (occurrence: BR)
  Receive Date: 20140429
  Receipt Date: 20140429
  Transmission Date: 20141212
  Serious: Yes (Death)
  Sender: FDA-Public Use
  Company Number: BR-GE HEALTHCARE MEDICAL DIAGNOSTICS-CRTC-PR-1404S-0007

PATIENT
  Age: 21 Year
  Sex: Male

DRUGS (2)
  1. CERETEC [Suspect]
     Indication: SCHIZOPHRENIA
     Dosage: DOSE NOT REPORTED
     Route: 042
     Dates: start: 2013, end: 2013
  2. CERETEC [Suspect]
     Indication: DIAGNOSTIC PROCEDURE

REACTIONS (1)
  - Completed suicide [Fatal]
